FAERS Safety Report 8595681-5 (Version None)
Quarter: 2012Q3

REPORT INFORMATION
  Report Type: 
  Country: None (occurrence: None)
  Receive Date: 20120815
  Receipt Date: 20120808
  Transmission Date: 20120928
  Serious: Yes (Life-Threatening, Hospitalization)
  Sender: FDA-Public Use
  Company Number: US-ROCHE-1063682

PATIENT
  Sex: Female
  Weight: 57.6 kg

DRUGS (12)
  1. HERCEPTIN [Suspect]
     Dosage: PERMANENTLY DISCONTINUED
     Dates: end: 20120525
  2. DOCETAXEL [Suspect]
     Dosage: PERMANENTLY DISCONTINUED
     Dates: end: 20120525
  3. PERTUZUMAB [Suspect]
     Indication: BREAST CANCER
     Dosage: LOADING DOSE
     Route: 042
     Dates: start: 20120413, end: 20120525
  4. DOCETAXEL [Suspect]
     Indication: BREAST CANCER
     Dosage: PERMANENTLY DISCONTINUED
     Route: 042
     Dates: start: 20120413, end: 20120504
  5. CARBOPLATIN [Suspect]
     Dosage: PERMANENTLY DISCONTINUED
     Dates: end: 20120525
  6. CLINDAMYCIN [Concomitant]
     Dates: start: 20120326
  7. LOVAZA [Concomitant]
     Dates: start: 20120402
  8. HERCEPTIN [Suspect]
     Dosage: MAINTANANCE DOSE, TEMPORARILY INTERRUPTED
     Route: 042
     Dates: end: 20120504
  9. CARBOPLATIN [Suspect]
     Indication: BREAST CANCER
     Dosage: TEMPORARILY DISCONTINUED
     Route: 042
     Dates: start: 20120413, end: 20120504
  10. TYLENOL [Concomitant]
     Dates: start: 20120326
  11. ZOFRAN [Concomitant]
     Dates: start: 20120413
  12. HERCEPTIN [Suspect]
     Indication: BREAST CANCER
     Dosage: LOADING DOSE, PERMANENTLY DISCONTINUED
     Route: 042
     Dates: start: 20120413

REACTIONS (4)
  - DIARRHOEA [None]
  - ABDOMINAL PAIN [None]
  - DISSEMINATED INTRAVASCULAR COAGULATION [None]
  - FEBRILE NEUTROPENIA [None]
